FAERS Safety Report 10083535 (Version 1)
Quarter: 2014Q2

REPORT INFORMATION
  Report Type: Spontaneous
  Country: US (occurrence: None)
  Receive Date: 20140416
  Receipt Date: 20140416
  Transmission Date: 20141212
  Serious: Yes (Other)
  Sender: FDA-Public Use
  Company Number: None

PATIENT
  Age: 27 Year
  Sex: Male
  Weight: 91.63 kg

DRUGS (1)
  1. AZITHROMYCIN [Suspect]
     Indication: EAR INFECTION
     Dosage: 2 PILLS FIRST THEN 1 DAILY?ONCE DAILY?TAKEN BY MOUTH
     Route: 048
     Dates: start: 20140410, end: 20140413

REACTIONS (10)
  - Tinnitus [None]
  - Rash [None]
  - Abdominal distension [None]
  - Skin odour abnormal [None]
  - Eructation [None]
  - Dizziness [None]
  - Fatigue [None]
  - Insomnia [None]
  - Gastrointestinal pain [None]
  - Diarrhoea [None]
